FAERS Safety Report 17075652 (Version 2)
Quarter: 2020Q1

REPORT INFORMATION
  Report Type: Spontaneous
  Country: US (occurrence: US)
  Receive Date: 20191126
  Receipt Date: 20200127
  Transmission Date: 20200409
  Serious: No
  Sender: FDA-Public Use
  Company Number: US-PFIZER INC-2019506195

PATIENT
  Age: 75 Year
  Sex: Female
  Weight: 90.7 kg

DRUGS (4)
  1. LEVOTHYROXINE. [Concomitant]
     Active Substance: LEVOTHYROXINE
     Indication: THYROID DISORDER
     Dosage: 50 MG, 1X/DAY (50MG-A.M.)
     Dates: start: 2012
  2. AMLODIPINE BESILATE [Suspect]
     Active Substance: AMLODIPINE BESYLATE
     Dosage: 10 MG, 1X/DAY
     Route: 048
  3. SERTRALINE [Concomitant]
     Active Substance: SERTRALINE HYDROCHLORIDE
     Indication: ANTIDEPRESSANT THERAPY
     Dosage: 100 MG, 1X/DAY
     Dates: start: 2012
  4. LISINOPRIL. [Concomitant]
     Active Substance: LISINOPRIL
     Indication: BLOOD PRESSURE MEASUREMENT
     Dosage: 40 MG, 1X/DAY
     Dates: start: 2012

REACTIONS (12)
  - Condition aggravated [Not Recovered/Not Resolved]
  - Feeling abnormal [Unknown]
  - Pain in extremity [Not Recovered/Not Resolved]
  - Balance disorder [Not Recovered/Not Resolved]
  - Product complaint [Not Recovered/Not Resolved]
  - Dry eye [Unknown]
  - Diarrhoea [Unknown]
  - Feeding disorder [Not Recovered/Not Resolved]
  - Abdominal discomfort [Unknown]
  - Muscle spasms [Not Recovered/Not Resolved]
  - Toothache [Not Recovered/Not Resolved]
  - Hyperaesthesia teeth [Unknown]

NARRATIVE: CASE EVENT DATE: 201812
